FAERS Safety Report 20047891 (Version 2)
Quarter: 2021Q4

REPORT INFORMATION
  Report Type: Spontaneous
  Country: US (occurrence: None)
  Receive Date: 20211109
  Receipt Date: 20211119
  Transmission Date: 20220303
  Serious: Yes (Life-Threatening, Hospitalization, Other)
  Sender: FDA-Public Use
  Company Number: US-Hikma Pharmaceuticals USA Inc.-US-H14001-21-04797

PATIENT
  Age: 6 Month
  Sex: Male

DRUGS (7)
  1. THIOTEPA [Suspect]
     Active Substance: THIOTEPA
     Indication: Atypical teratoid/rhabdoid tumour of CNS
     Dosage: UNKNOWN
     Route: 065
  2. CARBOPLATIN [Suspect]
     Active Substance: CARBOPLATIN
     Indication: Atypical teratoid/rhabdoid tumour of CNS
     Dosage: UNKNOWN
     Route: 065
  3. VINCRISTINE [Suspect]
     Active Substance: VINCRISTINE
     Indication: Atypical teratoid/rhabdoid tumour of CNS
     Dosage: THREE CYCLES
     Route: 065
  4. CISPLATIN [Suspect]
     Active Substance: CISPLATIN
     Indication: Atypical teratoid/rhabdoid tumour of CNS
     Dosage: THREE CYCLES
     Route: 065
  5. CYCLOPHOSPHAMIDE [Suspect]
     Active Substance: CYCLOPHOSPHAMIDE
     Indication: Atypical teratoid/rhabdoid tumour of CNS
     Dosage: THREE CYCLES
     Route: 065
  6. ETOPOSIDE [Suspect]
     Active Substance: ETOPOSIDE
     Indication: Atypical teratoid/rhabdoid tumour of CNS
     Dosage: THREE CYCLES
     Route: 065
  7. METHOTREXATE [Suspect]
     Active Substance: METHOTREXATE
     Indication: Atypical teratoid/rhabdoid tumour of CNS
     Dosage: THREE CYCLES
     Route: 065

REACTIONS (4)
  - Pulmonary arterial hypertension [Recovering/Resolving]
  - Pulmonary veno-occlusive disease [Unknown]
  - Pericardial effusion [Unknown]
  - Right ventricular dilatation [Unknown]
